FAERS Safety Report 7488914-X (Version None)
Quarter: 2011Q2

REPORT INFORMATION
  Report Type: 
  Country: None (occurrence: None)
  Receive Date: 20110518
  Receipt Date: 20110412
  Transmission Date: 20111010
  Serious: Yes (Hospitalization, Other)
  Sender: FDA-Public Use
  Company Number: US-BAYER-201039859NA

PATIENT
  Age: 40 Year
  Sex: Female

DRUGS (9)
  1. EXCEDRIN (MIGRAINE) [Concomitant]
     Indication: HEADACHE
  2. YASMIN [Suspect]
     Indication: CONTRACEPTION
     Dosage: UNK
     Dates: start: 20060301, end: 20080701
  3. YASMIN [Suspect]
     Indication: PREMENSTRUAL SYNDROME
     Dosage: UNK
     Dates: start: 20060301, end: 20080701
  4. BYSLOLIC [Concomitant]
  5. DROSPIRENONE AND ETHINYL ESTRADIOL [Suspect]
     Indication: PREMENSTRUAL SYNDROME
     Dosage: UNK
     Dates: start: 20080701, end: 20090201
  6. ELAVIL [Concomitant]
     Indication: HEADACHE
  7. DROSPIRENONE AND ETHINYL ESTRADIOL [Suspect]
     Indication: CONTRACEPTION
     Dosage: UNK
     Dates: start: 20080701, end: 20090201
  8. EXCEDRIN (MIGRAINE) [Concomitant]
     Indication: MIGRAINE
  9. FLUCONAZOLE [Concomitant]
     Indication: FUNGAL INFECTION

REACTIONS (4)
  - CHOLELITHIASIS [None]
  - CHOLECYSTITIS [None]
  - GALLBLADDER DISORDER [None]
  - ABDOMINAL PAIN UPPER [None]
